FAERS Safety Report 24555764 (Version 3)
Quarter: 2025Q3

REPORT INFORMATION
  Report Type: Spontaneous
  Country: US (occurrence: US)
  Receive Date: 20241028
  Receipt Date: 20250816
  Transmission Date: 20251021
  Serious: Yes (Other)
  Sender: ALEXION PHARMACEUTICALS
  Company Number: US-009507513-2410USA006116

PATIENT
  Sex: Male

DRUGS (6)
  1. LYNPARZA [Suspect]
     Active Substance: OLAPARIB
     Indication: Product used for unknown indication
     Dosage: 300 UNK, BID
  2. LYNPARZA [Suspect]
     Active Substance: OLAPARIB
     Dosage: 150 UNK, BID
  3. LYNPARZA [Suspect]
     Active Substance: OLAPARIB
     Dosage: 100 UNK, BID
  4. LYNPARZA [Suspect]
     Active Substance: OLAPARIB
  5. LYNPARZA [Suspect]
     Active Substance: OLAPARIB
  6. LYNPARZA [Suspect]
     Active Substance: OLAPARIB

REACTIONS (2)
  - Acute kidney injury [Recovering/Resolving]
  - Creatinine renal clearance increased [Recovering/Resolving]
